FAERS Safety Report 18897927 (Version 1)
Quarter: 2021Q1

REPORT INFORMATION
  Report Type: Spontaneous
  Country: US (occurrence: US)
  Receive Date: 20210212
  Receipt Date: 20210212
  Transmission Date: 20210420
  Serious: No
  Sender: FDA-Public Use
  Company Number: None

PATIENT
  Age: 29 Year
  Sex: Female
  Weight: 65.77 kg

DRUGS (1)
  1. APLISOL [Suspect]
     Active Substance: TUBERCULIN PURIFIED PROTEIN DERIVATIVE

REACTIONS (2)
  - Product administration error [None]
  - Prescription drug used without a prescription [None]

NARRATIVE: CASE EVENT DATE: 20201216
